FAERS Safety Report 21243963 (Version 1)
Quarter: 2022Q3

REPORT INFORMATION
  Report Type: Spontaneous
  Country: HU (occurrence: HU)
  Receive Date: 20220823
  Receipt Date: 20220823
  Transmission Date: 20221027
  Serious: Yes (Hospitalization, Other)
  Sender: FDA-Public Use
  Company Number: HU-009507513-2208HUN007550

PATIENT
  Age: 65 Year
  Sex: Female

DRUGS (2)
  1. KEYTRUDA [Suspect]
     Active Substance: PEMBROLIZUMAB
     Indication: Lung adenocarcinoma
     Dosage: UNKNOWN
     Dates: start: 202006
  2. PEMETREXED [Suspect]
     Active Substance: PEMETREXED
     Indication: Lung adenocarcinoma
     Dosage: UNKNOWN
     Dates: start: 202006

REACTIONS (6)
  - Chronic obstructive pulmonary disease [Recovered/Resolved]
  - Cardiac failure [Unknown]
  - Hydrothorax [Unknown]
  - Hydrothorax [Recovering/Resolving]
  - Anaemia [Unknown]
  - Oedema peripheral [Recovered/Resolved]

NARRATIVE: CASE EVENT DATE: 20200101
